FAERS Safety Report 5160473-6 (Version None)
Quarter: 2006Q4

REPORT INFORMATION
  Report Type: 
  Country: None (occurrence: None)
  Receive Date: 20061120
  Receipt Date: 20061109
  Transmission Date: 20070319
  Serious: Yes (Hospitalization)
  Sender: FDA-Public Use
  Company Number: 2006SP006118

PATIENT
  Age: 54 Year
  Sex: Male

DRUGS (5)
  1. PEG-INTRON [Suspect]
     Indication: HEPATITIS C
     Dates: start: 20051209
  2. RIBASPHERE [Suspect]
     Indication: HEPATITIS C
     Dosage: PO
     Route: 048
     Dates: start: 20051209
  3. PAXIL (CON) [Concomitant]
  4. SYNTHROID (CON) [Concomitant]
  5. METFORMIN HYDROCHLORIDE (CON) [Concomitant]

REACTIONS (2)
  - NEPHROLITHIASIS [None]
  - RASH PRURITIC [None]
